FAERS Safety Report 8235798-8 (Version None)
Quarter: 2012Q1

REPORT INFORMATION
  Report Type: 
  Country: None (occurrence: None)
  Receive Date: 20120326
  Receipt Date: 20120316
  Transmission Date: 20120608
  Serious: Yes (Hospitalization, Other)
  Sender: FDA-Public Use
  Company Number: DE-ELI_LILLY_AND_COMPANY-DE201203005011

PATIENT
  Age: 75 Year
  Sex: Female

DRUGS (5)
  1. METOPROLOL SUCCINATE [Concomitant]
  2. POLYETHYLENE GLYCOL [Concomitant]
     Indication: GASTROINTESTINAL HYPOMOTILITY
  3. MORPHINE [Concomitant]
  4. ANALGESICS [Concomitant]
  5. FORTEO [Suspect]
     Indication: OSTEOPOROSIS
     Dosage: UNK, QD
     Route: 058
     Dates: start: 20110620

REACTIONS (4)
  - PELVIC FRACTURE [None]
  - INTERVERTEBRAL DISC PROTRUSION [None]
  - FALL [None]
  - PAIN [None]
